FAERS Safety Report 9639507 (Version 1)
Quarter: 2013Q4

REPORT INFORMATION
  Report Type: Spontaneous
  Country: US (occurrence: US)
  Receive Date: 20131023
  Receipt Date: 20131023
  Transmission Date: 20140711
  Serious: No
  Sender: FDA-Public Use
  Company Number: US-009507513-1310USA008890

PATIENT
  Age: 33 Year
  Sex: Female
  Weight: 143.31 kg

DRUGS (1)
  1. IMPLANON [Suspect]
     Indication: CONTRACEPTION
     Dosage: 1 ROD EVERY 3 YEARS
     Route: 059
     Dates: start: 20121025

REACTIONS (3)
  - Unintended pregnancy [Unknown]
  - Device difficult to use [Not Recovered/Not Resolved]
  - Device difficult to use [Not Recovered/Not Resolved]
